FAERS Safety Report 21232041 (Version 1)
Quarter: 2022Q3

REPORT INFORMATION
  Report Type: Spontaneous
  Country: US (occurrence: US)
  Receive Date: 20220819
  Receipt Date: 20220819
  Transmission Date: 20221026
  Serious: No
  Sender: FDA-Public Use
  Company Number: US-ALLERGAN-2219419US

PATIENT
  Sex: Female

DRUGS (1)
  1. ACUVAIL [Suspect]
     Active Substance: KETOROLAC TROMETHAMINE
     Indication: Postoperative care
     Dosage: 4 GTT, QD

REACTIONS (4)
  - Incorrect dose administered [Unknown]
  - Eye irritation [Unknown]
  - Eye inflammation [Unknown]
  - Ocular hyperaemia [Unknown]
